FAERS Safety Report 7619246-4 (Version None)
Quarter: 2011Q3

REPORT INFORMATION
  Report Type: 
  Country: None (occurrence: None)
  Receive Date: 20110718
  Receipt Date: 20110707
  Transmission Date: 20111222
  Serious: Yes (Hospitalization)
  Sender: FDA-Public Use
  Company Number: JP-AMGEN-JPNCT2011032994

PATIENT
  Age: 55 Year
  Sex: Male
  Weight: 58 kg

DRUGS (14)
  1. PANITUMUMAB [Suspect]
     Dosage: 360 MG, Q2WK
     Route: 041
     Dates: start: 20110620, end: 20110620
  2. IRINOTECAN HCL [Concomitant]
     Indication: RECTAL CANCER
     Route: 041
     Dates: start: 20110525
  3. OXYCONTIN [Concomitant]
     Indication: CANCER PAIN
     Route: 048
     Dates: start: 20100514, end: 20110524
  4. OXINORM [Concomitant]
     Dosage: 30 MG, UNK
     Dates: start: 20110530
  5. MAGNESIUM SULFATE [Concomitant]
     Route: 048
     Dates: start: 20100508
  6. PANITUMUMAB [Suspect]
     Indication: LARGE INTESTINE CARCINOMA
     Dosage: 180 MG, Q2WK
     Route: 041
     Dates: start: 20110524, end: 20110524
  7. OSTELUC [Concomitant]
     Indication: CANCER PAIN
     Route: 048
     Dates: start: 20100422
  8. OXINORM [Concomitant]
     Indication: CANCER PAIN
     Route: 048
     Dates: start: 20100422, end: 20110524
  9. PYRINAZIN [Concomitant]
     Indication: CANCER PAIN
     Route: 048
     Dates: start: 20110513
  10. AMITRIPTYLINE HCL [Concomitant]
     Indication: CANCER PAIN
     Route: 048
     Dates: start: 20101115
  11. RABEPRAZOLE SODIUM [Concomitant]
     Indication: CANCER PAIN
     Route: 048
     Dates: start: 20100422
  12. HIRUDOID LOTION [Concomitant]
     Route: 062
     Dates: start: 20110519
  13. FLUOROURACIL [Concomitant]
     Indication: RECTAL CANCER
     Route: 041
     Dates: start: 20110525
  14. LEUCOVORIN CALCIUM [Concomitant]
     Indication: RECTAL CANCER
     Route: 041
     Dates: start: 20110525

REACTIONS (2)
  - CANCER PAIN [None]
  - HYPERHIDROSIS [None]
